FAERS Safety Report 25450191 (Version 1)
Quarter: 2025Q2

REPORT INFORMATION
  Report Type: Spontaneous
  Country: ES (occurrence: ES)
  Receive Date: 20250618
  Receipt Date: 20250618
  Transmission Date: 20250716
  Serious: Yes (Hospitalization, Other)
  Sender: AUROBINDO
  Company Number: ES-AEMPS-1689654

PATIENT
  Age: 76 Year
  Sex: Male

DRUGS (6)
  1. MEROPENEM [Suspect]
     Active Substance: MEROPENEM
     Indication: Respiratory tract infection bacterial
     Dosage: 2.54 GRAM, ONCE A DAY
     Route: 042
     Dates: start: 20250205, end: 20250210
  2. FUROSEMIDE [Suspect]
     Active Substance: FUROSEMIDE
     Indication: Product used for unknown indication
     Dosage: 79.75 MILLIGRAM, ONCE A DAY
     Route: 042
     Dates: start: 20250206, end: 20250212
  3. TEICOPLANIN [Suspect]
     Active Substance: TEICOPLANIN
     Indication: Respiratory tract infection bacterial
     Dosage: 600 MILLIGRAM, ONCE A DAY
     Route: 042
     Dates: start: 20250205, end: 20250206
  4. DEXMEDETOMIDINE [Suspect]
     Active Substance: DEXMEDETOMIDINE
     Indication: Product used for unknown indication
     Dosage: 700 MICROGRAM, ONCE A DAY
     Route: 042
     Dates: start: 20250206, end: 20250212
  5. METHYLPREDNISOLONE [Suspect]
     Active Substance: METHYLPREDNISOLONE
     Indication: Product used for unknown indication
     Dosage: 22 MILLIGRAM, ONCE A DAY
     Route: 042
     Dates: start: 20250205, end: 20250211
  6. REMIFENTANIL [Suspect]
     Active Substance: REMIFENTANIL
     Indication: Product used for unknown indication
     Dosage: 15.6 MILLIGRAM, ONCE A DAY
     Route: 042
     Dates: start: 20250205, end: 20250210

REACTIONS (2)
  - Hyperbilirubinaemia [Recovering/Resolving]
  - Mixed liver injury [Recovered/Resolved]

NARRATIVE: CASE EVENT DATE: 20250208
